FAERS Safety Report 15110110 (Version 3)
Quarter: 2018Q3

REPORT INFORMATION
  Report Type: Report from Study
  Country: JP (occurrence: JP)
  Receive Date: 20180705
  Receipt Date: 20180813
  Transmission Date: 20181010
  Serious: Yes (Other)
  Sender: FDA-Public Use
  Company Number: JP-B.I. PHARMACEUTICALS,INC./RIDGEFIELD-2018-BI-033855

PATIENT
  Age: 43 Year

DRUGS (6)
  1. GILOTRIF [Suspect]
     Active Substance: AFATINIB
     Indication: EGFR GENE MUTATION
     Route: 065
  2. GILOTRIF [Suspect]
     Active Substance: AFATINIB
     Indication: METASTASES TO BONE
  3. CARBOPLATIN. [Concomitant]
     Active Substance: CARBOPLATIN
     Indication: PRODUCT USED FOR UNKNOWN INDICATION
     Route: 065
  4. PEMETREXED. [Concomitant]
     Active Substance: PEMETREXED
     Indication: PRODUCT USED FOR UNKNOWN INDICATION
     Route: 065
  5. GILOTRIF [Suspect]
     Active Substance: AFATINIB
     Indication: NON-SMALL CELL LUNG CANCER
  6. BEVACIZUMAB RECOMBINANT [Concomitant]
     Active Substance: BEVACIZUMAB
     Indication: PRODUCT USED FOR UNKNOWN INDICATION
     Route: 065

REACTIONS (3)
  - Meningeal neoplasm [Unknown]
  - Metastases to liver [Unknown]
  - Malignant neoplasm progression [Unknown]
